FAERS Safety Report 5276492-5 (Version None)
Quarter: 2007Q1

REPORT INFORMATION
  Report Type: 
  Country: None (occurrence: None)
  Receive Date: 20061213
  Receipt Date: 20030902
  Transmission Date: 20070707
  Serious: No
  Sender: FDA-Public Use
  Company Number: 2003UW10228

PATIENT
  Age: 51 Year
  Sex: Female
  Weight: 58.9676 kg

DRUGS (4)
  1. SEROQUEL [Suspect]
     Indication: DEPRESSION
     Dosage: 25 MG PO
     Route: 048
  2. CELEXA [Suspect]
  3. WELLBUTRIN [Suspect]
  4. ZOLOFT [Suspect]

REACTIONS (3)
  - ACCIDENTAL OVERDOSE [None]
  - CHEILITIS [None]
  - DYSGEUSIA [None]
